FAERS Safety Report 10874651 (Version 2)
Quarter: 2015Q1

REPORT INFORMATION
  Report Type: Spontaneous
  Country: BR (occurrence: BR)
  Receive Date: 20150227
  Receipt Date: 20150310
  Transmission Date: 20150721
  Serious: Yes (Other)
  Sender: FDA-Public Use
  Company Number: BR-GLAXOSMITHKLINE-BR2015GSK020527

PATIENT
  Age: 79 Year
  Sex: Female
  Weight: 50 kg

DRUGS (7)
  1. SOMALGIN [Concomitant]
     Active Substance: ASPIRIN\DIHYDROXYALUMINUM AMINOACETATE ANHYDROUS\MAGNESIUM CARBONATE
     Indication: BLOOD DISORDER
     Dosage: 1 UNK, QD
     Route: 048
  2. SIMVASTATIN. [Concomitant]
     Active Substance: SIMVASTATIN
     Indication: BLOOD CHOLESTEROL
     Dosage: 1 UNK, QD
     Route: 048
  3. RELVAR ELLIPTA [Suspect]
     Active Substance: FLUTICASONE FUROATE\VILANTEROL TRIFENATATE
     Indication: RESPIRATORY DISORDER
     Dosage: 1 UNK, QD
     Route: 055
     Dates: start: 201411
  4. METRAZAPINE (MEDICATION UNKNOWN) [Concomitant]
     Indication: HUMORAL IMMUNE DEFECT
     Dosage: 1 UNK, QD
     Route: 048
     Dates: start: 20120213
  5. LABIRIN [Concomitant]
     Active Substance: BETAHISTINE
     Indication: LABYRINTHITIS
     Dosage: 1 UNK, QD
     Route: 048
     Dates: start: 20100213
  6. PRESSAT [Concomitant]
     Active Substance: AMLODIPINE BESYLATE
     Indication: ARTERIAL DISORDER
     Dosage: 1 UNK, QD
     Route: 048
  7. DONEPEZIL HYDROCHLORIDE. [Concomitant]
     Active Substance: DONEPEZIL HYDROCHLORIDE
     Indication: DEMENTIA ALZHEIMER^S TYPE
     Dosage: 1 UNK, QD
     Route: 048
     Dates: start: 20120213

REACTIONS (5)
  - Product quality issue [Unknown]
  - Overdose [Not Recovered/Not Resolved]
  - Asthmatic crisis [Recovering/Resolving]
  - Wheezing [Recovering/Resolving]
  - Fatigue [Recovering/Resolving]

NARRATIVE: CASE EVENT DATE: 20150205
